FAERS Safety Report 6587589-1 (Version None)
Quarter: 2010Q1

REPORT INFORMATION
  Report Type: 
  Country: None (occurrence: None)
  Receive Date: 20100218
  Receipt Date: 20100212
  Transmission Date: 20100710
  Serious: Yes (Other)
  Sender: FDA-Public Use
  Company Number: US-ASTRAZENECA-2009UW04217

PATIENT
  Age: 36 Year
  Sex: Female
  Weight: 109.8 kg

DRUGS (15)
  1. SEROQUEL [Suspect]
     Indication: INSOMNIA
     Dosage: 25 TO 100 MG
     Route: 048
     Dates: start: 20040330, end: 20050101
  2. SEROQUEL [Suspect]
     Indication: PANIC ATTACK
     Dosage: 25 TO 100 MG
     Route: 048
     Dates: start: 20040330, end: 20050101
  3. ABILIFY [Concomitant]
     Dosage: 15 TO 30 MG
     Dates: start: 20040101, end: 20040201
  4. GEODON [Concomitant]
     Dosage: 20 TO 80 MG
     Dates: start: 20050201, end: 20060701
  5. RISPERDAL [Concomitant]
  6. WELLBUTRIN [Concomitant]
     Dates: start: 20071201, end: 20080601
  7. LORAZEPAM [Concomitant]
     Dates: start: 20050601
  8. BUPROPION HCL [Concomitant]
     Dates: start: 20080101
  9. PROZAC [Concomitant]
     Dates: start: 20040601
  10. LITHIUM CARBONATE [Concomitant]
     Dates: start: 20041101
  11. CLONAZEPAM [Concomitant]
     Dosage: 0.5 TO 1 MG
     Dates: start: 20040101, end: 20081201
  12. FLUOXETINE [Concomitant]
     Dosage: 10 TO 20 MG
     Dates: start: 20040601, end: 20060201
  13. TRAZODONE [Concomitant]
     Dates: start: 20060801, end: 20060901
  14. CYMBALTA [Concomitant]
     Dates: start: 20040901
  15. LAMICTAL [Concomitant]
     Dosage: 25 TO 150 MG
     Dates: start: 20040201, end: 20060801

REACTIONS (14)
  - BACK PAIN [None]
  - BACTERIAL INFECTION [None]
  - BLADDER DISORDER [None]
  - BLADDER PAIN [None]
  - FUNGAL INFECTION [None]
  - GASTRIC ULCER [None]
  - GASTROOESOPHAGEAL REFLUX DISEASE [None]
  - HEADACHE [None]
  - HYSTERECTOMY [None]
  - INFLAMMATION [None]
  - OSTEOARTHRITIS [None]
  - PAIN [None]
  - STRESS URINARY INCONTINENCE [None]
  - TYPE 2 DIABETES MELLITUS [None]
